FAERS Safety Report 20752117 (Version 6)
Quarter: 2025Q3

REPORT INFORMATION
  Report Type: Spontaneous
  Country: CA (occurrence: CA)
  Receive Date: 20220426
  Receipt Date: 20250829
  Transmission Date: 20251021
  Serious: Yes (Death, Congenital Anomaly, Other)
  Sender: NOVARTIS
  Company Number: CA-NOVARTISPH-NVSC2022CA093732

PATIENT

DRUGS (261)
  1. ERELZI [Suspect]
     Active Substance: ETANERCEPT-SZZS
     Indication: Foetal exposure during pregnancy
     Route: 064
  2. ADALIMUMAB [Suspect]
     Active Substance: ADALIMUMAB
     Indication: Foetal exposure during pregnancy
     Route: 064
  3. ADALIMUMAB [Suspect]
     Active Substance: ADALIMUMAB
     Route: 064
  4. COSENTYX [Suspect]
     Active Substance: SECUKINUMAB
     Indication: Foetal exposure during pregnancy
     Route: 064
  5. RITUXIMAB [Suspect]
     Active Substance: RITUXIMAB
     Indication: Foetal exposure during pregnancy
     Route: 064
  6. RITUXIMAB [Suspect]
     Active Substance: RITUXIMAB
     Route: 064
  7. RITUXIMAB [Suspect]
     Active Substance: RITUXIMAB
     Route: 064
  8. RITUXIMAB [Suspect]
     Active Substance: RITUXIMAB
     Route: 064
  9. RITUXIMAB [Suspect]
     Active Substance: RITUXIMAB
     Route: 064
  10. RITUXIMAB [Suspect]
     Active Substance: RITUXIMAB
     Route: 064
  11. RITUXIMAB [Suspect]
     Active Substance: RITUXIMAB
     Route: 064
  12. RITUXIMAB [Suspect]
     Active Substance: RITUXIMAB
     Route: 064
  13. DEXAMETHASONE [Suspect]
     Active Substance: DEXAMETHASONE
     Indication: Foetal exposure during pregnancy
     Route: 064
  14. DICLOFENAC [Suspect]
     Active Substance: DICLOFENAC
     Indication: Foetal exposure during pregnancy
     Route: 064
  15. DICLOFENAC [Suspect]
     Active Substance: DICLOFENAC
     Route: 064
  16. DICLOFENAC [Suspect]
     Active Substance: DICLOFENAC
     Route: 064
  17. DICLOFENAC [Suspect]
     Active Substance: DICLOFENAC
     Route: 064
  18. DICLOFENAC SODIUM [Suspect]
     Active Substance: DICLOFENAC SODIUM
     Indication: Foetal exposure during pregnancy
     Route: 064
  19. METHOTREXATE [Suspect]
     Active Substance: METHOTREXATE
     Indication: Foetal exposure during pregnancy
     Route: 064
  20. METHOTREXATE [Suspect]
     Active Substance: METHOTREXATE
     Route: 064
  21. METHOTREXATE [Suspect]
     Active Substance: METHOTREXATE
     Route: 064
  22. METHOTREXATE [Suspect]
     Active Substance: METHOTREXATE
     Route: 064
  23. METHOTREXATE [Suspect]
     Active Substance: METHOTREXATE
     Route: 064
  24. METHOTREXATE [Suspect]
     Active Substance: METHOTREXATE
     Route: 064
  25. METHOTREXATE [Suspect]
     Active Substance: METHOTREXATE
     Route: 064
  26. METHOTREXATE [Suspect]
     Active Substance: METHOTREXATE
     Route: 064
  27. METHOTREXATE [Suspect]
     Active Substance: METHOTREXATE
     Route: 064
  28. METHOTREXATE [Suspect]
     Active Substance: METHOTREXATE
     Route: 064
  29. METHOTREXATE [Suspect]
     Active Substance: METHOTREXATE
     Route: 064
  30. METHOTREXATE [Suspect]
     Active Substance: METHOTREXATE
     Route: 064
  31. METHOTREXATE [Suspect]
     Active Substance: METHOTREXATE
     Route: 064
  32. METHOTREXATE [Suspect]
     Active Substance: METHOTREXATE
     Route: 064
  33. METHOTREXATE [Suspect]
     Active Substance: METHOTREXATE
     Route: 064
  34. METHOTREXATE [Suspect]
     Active Substance: METHOTREXATE
     Route: 064
  35. LEFLUNOMIDE [Suspect]
     Active Substance: LEFLUNOMIDE
     Indication: Foetal exposure during pregnancy
     Route: 064
  36. LEFLUNOMIDE [Suspect]
     Active Substance: LEFLUNOMIDE
     Route: 064
  37. LEFLUNOMIDE [Suspect]
     Active Substance: LEFLUNOMIDE
     Route: 064
  38. ALENDRONIC ACID [Suspect]
     Active Substance: ALENDRONIC ACID
     Indication: Foetal exposure during pregnancy
     Route: 064
  39. FOLIC ACID [Suspect]
     Active Substance: FOLIC ACID
     Indication: Foetal exposure during pregnancy
     Route: 064
  40. FOLIC ACID [Suspect]
     Active Substance: FOLIC ACID
     Route: 064
  41. FOLIC ACID [Suspect]
     Active Substance: FOLIC ACID
     Route: 064
  42. FOLIC ACID [Suspect]
     Active Substance: FOLIC ACID
     Route: 064
  43. FOLIC ACID [Suspect]
     Active Substance: FOLIC ACID
     Route: 064
  44. FOLIC ACID [Suspect]
     Active Substance: FOLIC ACID
     Route: 064
  45. FOLIC ACID [Suspect]
     Active Substance: FOLIC ACID
     Route: 064
  46. FOLIC ACID [Suspect]
     Active Substance: FOLIC ACID
     Route: 064
  47. FOLIC ACID [Suspect]
     Active Substance: FOLIC ACID
     Route: 064
  48. FOLIC ACID [Suspect]
     Active Substance: FOLIC ACID
     Route: 064
  49. FOLIC ACID [Suspect]
     Active Substance: FOLIC ACID
     Route: 064
  50. FOLIC ACID [Suspect]
     Active Substance: FOLIC ACID
     Route: 064
  51. FOLIC ACID [Suspect]
     Active Substance: FOLIC ACID
     Route: 064
  52. FOLIC ACID [Suspect]
     Active Substance: FOLIC ACID
     Route: 064
  53. FOLIC ACID [Suspect]
     Active Substance: FOLIC ACID
     Route: 064
  54. HYDROCORTISONE [Suspect]
     Active Substance: HYDROCORTISONE
     Indication: Foetal exposure during pregnancy
     Route: 064
  55. DIPHENHYDRAMINE [Suspect]
     Active Substance: DIPHENHYDRAMINE
     Indication: Foetal exposure during pregnancy
     Route: 064
  56. DIPHENHYDRAMINE HYDROCHLORIDE [Suspect]
     Active Substance: DIPHENHYDRAMINE HYDROCHLORIDE
     Indication: Foetal exposure during pregnancy
     Route: 064
  57. DIPHENHYDRAMINE HYDROCHLORIDE [Suspect]
     Active Substance: DIPHENHYDRAMINE HYDROCHLORIDE
     Route: 064
  58. CALCIUM CARBONATE [Suspect]
     Active Substance: CALCIUM CARBONATE
     Indication: Foetal exposure during pregnancy
     Route: 064
  59. CALCIUM CARBONATE [Suspect]
     Active Substance: CALCIUM CARBONATE
     Route: 064
  60. CALCIUM CARBONATE [Suspect]
     Active Substance: CALCIUM CARBONATE
     Route: 064
  61. ACETAMINOPHEN [Suspect]
     Active Substance: ACETAMINOPHEN
     Indication: Foetal exposure during pregnancy
     Route: 064
  62. ACETAMINOPHEN [Suspect]
     Active Substance: ACETAMINOPHEN
     Route: 064
  63. ACETAMINOPHEN [Suspect]
     Active Substance: ACETAMINOPHEN
     Route: 064
  64. ACTEMRA [Suspect]
     Active Substance: TOCILIZUMAB
     Indication: Foetal exposure during pregnancy
     Route: 064
  65. ACTEMRA [Suspect]
     Active Substance: TOCILIZUMAB
     Route: 064
  66. ACTEMRA [Suspect]
     Active Substance: TOCILIZUMAB
     Route: 064
  67. ACTEMRA [Suspect]
     Active Substance: TOCILIZUMAB
     Route: 064
  68. ACTEMRA [Suspect]
     Active Substance: TOCILIZUMAB
     Route: 064
  69. ACTEMRA [Suspect]
     Active Substance: TOCILIZUMAB
     Route: 064
  70. ACTEMRA [Suspect]
     Active Substance: TOCILIZUMAB
     Route: 064
  71. ACTEMRA [Suspect]
     Active Substance: TOCILIZUMAB
     Route: 064
  72. PREDNISONE [Suspect]
     Active Substance: PREDNISONE
     Indication: Foetal exposure during pregnancy
     Route: 064
  73. PREDNISONE [Suspect]
     Active Substance: PREDNISONE
     Route: 064
  74. PREDNISONE [Suspect]
     Active Substance: PREDNISONE
     Route: 064
  75. PREDNISONE [Suspect]
     Active Substance: PREDNISONE
     Route: 064
  76. ARAVA [Suspect]
     Active Substance: LEFLUNOMIDE
     Indication: Foetal exposure during pregnancy
     Route: 064
  77. ARAVA [Suspect]
     Active Substance: LEFLUNOMIDE
     Route: 064
  78. ARAVA [Suspect]
     Active Substance: LEFLUNOMIDE
     Route: 064
  79. CETIRIZINE [Suspect]
     Active Substance: CETIRIZINE HYDROCHLORIDE
     Indication: Foetal exposure during pregnancy
     Route: 064
  80. CORTISONE ACETATE [Suspect]
     Active Substance: CORTISONE ACETATE
     Indication: Foetal exposure during pregnancy
     Route: 064
  81. CORTISONE ACETATE [Suspect]
     Active Substance: CORTISONE ACETATE
     Indication: Foetal exposure during pregnancy
     Route: 064
  82. CORTISONE ACETATE [Suspect]
     Active Substance: CORTISONE ACETATE
     Route: 064
  83. CORTISONE ACETATE [Suspect]
     Active Substance: CORTISONE ACETATE
     Route: 064
  84. CORTISONE ACETATE [Suspect]
     Active Substance: CORTISONE ACETATE
     Route: 064
  85. CORTISONE ACETATE [Suspect]
     Active Substance: CORTISONE ACETATE
     Route: 064
  86. CORTISONE ACETATE [Suspect]
     Active Substance: CORTISONE ACETATE
     Route: 064
  87. CORTISONE ACETATE [Suspect]
     Active Substance: CORTISONE ACETATE
     Route: 064
  88. CORTISONE ACETATE [Suspect]
     Active Substance: CORTISONE ACETATE
     Route: 064
  89. CORTISONE ACETATE [Suspect]
     Active Substance: CORTISONE ACETATE
     Route: 064
  90. CORTISONE ACETATE [Suspect]
     Active Substance: CORTISONE ACETATE
     Route: 064
  91. CORTISONE ACETATE [Suspect]
     Active Substance: CORTISONE ACETATE
     Route: 064
  92. CORTISONE ACETATE [Suspect]
     Active Substance: CORTISONE ACETATE
     Route: 064
  93. CIMZIA [Suspect]
     Active Substance: CERTOLIZUMAB PEGOL
     Indication: Foetal exposure during pregnancy
     Route: 064
  94. CIMZIA [Suspect]
     Active Substance: CERTOLIZUMAB PEGOL
     Route: 064
  95. CIMZIA [Suspect]
     Active Substance: CERTOLIZUMAB PEGOL
     Route: 064
  96. CIMZIA [Suspect]
     Active Substance: CERTOLIZUMAB PEGOL
     Route: 064
  97. CIMZIA [Suspect]
     Active Substance: CERTOLIZUMAB PEGOL
     Route: 064
  98. CIMZIA [Suspect]
     Active Substance: CERTOLIZUMAB PEGOL
     Route: 064
  99. CIMZIA [Suspect]
     Active Substance: CERTOLIZUMAB PEGOL
     Route: 064
  100. ENBREL [Suspect]
     Active Substance: ETANERCEPT
     Indication: Foetal exposure during pregnancy
     Route: 064
  101. ENBREL [Suspect]
     Active Substance: ETANERCEPT
     Route: 064
  102. ENBREL [Suspect]
     Active Substance: ETANERCEPT
     Route: 064
  103. ENBREL [Suspect]
     Active Substance: ETANERCEPT
     Route: 064
  104. FOSAMAX [Suspect]
     Active Substance: ALENDRONATE SODIUM
     Indication: Foetal exposure during pregnancy
     Route: 064
  105. FOSAMAX [Suspect]
     Active Substance: ALENDRONATE SODIUM
     Route: 064
  106. FOSAMAX [Suspect]
     Active Substance: ALENDRONATE SODIUM
     Route: 064
  107. FOSAMAX [Suspect]
     Active Substance: ALENDRONATE SODIUM
     Route: 064
  108. FOSAMAX [Suspect]
     Active Substance: ALENDRONATE SODIUM
     Route: 064
  109. GOLIMUMAB [Suspect]
     Active Substance: GOLIMUMAB
     Indication: Foetal exposure during pregnancy
     Route: 064
  110. GOLIMUMAB [Suspect]
     Active Substance: GOLIMUMAB
     Route: 064
  111. HUMIRA [Suspect]
     Active Substance: ADALIMUMAB
     Indication: Foetal exposure during pregnancy
     Route: 064
  112. HUMIRA [Suspect]
     Active Substance: ADALIMUMAB
     Route: 064
  113. HUMIRA [Suspect]
     Active Substance: ADALIMUMAB
     Route: 064
  114. HUMIRA [Suspect]
     Active Substance: ADALIMUMAB
     Route: 064
  115. HUMIRA [Suspect]
     Active Substance: ADALIMUMAB
     Route: 064
  116. HUMIRA [Suspect]
     Active Substance: ADALIMUMAB
     Route: 064
  117. HUMIRA [Suspect]
     Active Substance: ADALIMUMAB
     Route: 064
  118. HYDROXYCHLOROQUINE [Suspect]
     Active Substance: HYDROXYCHLOROQUINE
     Indication: Foetal exposure during pregnancy
     Route: 064
  119. HYDROXYCHLOROQUINE [Suspect]
     Active Substance: HYDROXYCHLOROQUINE
     Route: 064
  120. HYDROXYCHLOROQUINE [Suspect]
     Active Substance: HYDROXYCHLOROQUINE
     Route: 064
  121. HYDROXYCHLOROQUINE [Suspect]
     Active Substance: HYDROXYCHLOROQUINE
     Route: 064
  122. HYDROXYCHLOROQUINE [Suspect]
     Active Substance: HYDROXYCHLOROQUINE
     Route: 064
  123. HYDROXYCHLOROQUINE [Suspect]
     Active Substance: HYDROXYCHLOROQUINE
     Route: 064
  124. HYDROXYCHLOROQUINE [Suspect]
     Active Substance: HYDROXYCHLOROQUINE
     Route: 064
  125. HYDROXYCHLOROQUINE [Suspect]
     Active Substance: HYDROXYCHLOROQUINE
     Route: 064
  126. HYDROXYCHLOROQUINE [Suspect]
     Active Substance: HYDROXYCHLOROQUINE
     Route: 064
  127. HYDROXYCHLOROQUINE [Suspect]
     Active Substance: HYDROXYCHLOROQUINE
     Route: 064
  128. HYDROXYCHLOROQUINE [Suspect]
     Active Substance: HYDROXYCHLOROQUINE
     Route: 064
  129. HYDROXYCHLOROQUINE [Suspect]
     Active Substance: HYDROXYCHLOROQUINE
     Route: 064
  130. HYDROXYCHLOROQUINE SULFATE [Suspect]
     Active Substance: HYDROXYCHLOROQUINE SULFATE
     Indication: Foetal exposure during pregnancy
     Route: 064
  131. HYDROXYCHLOROQUINE SULFATE [Suspect]
     Active Substance: HYDROXYCHLOROQUINE SULFATE
     Route: 064
  132. HYDROXYCHLOROQUINE SULFATE [Suspect]
     Active Substance: HYDROXYCHLOROQUINE SULFATE
     Route: 064
  133. ORENCIA [Suspect]
     Active Substance: ABATACEPT
     Indication: Foetal exposure during pregnancy
     Route: 064
  134. ORENCIA [Suspect]
     Active Substance: ABATACEPT
     Route: 064
  135. ORENCIA [Suspect]
     Active Substance: ABATACEPT
     Route: 064
  136. ORENCIA [Suspect]
     Active Substance: ABATACEPT
     Route: 064
  137. ORENCIA [Suspect]
     Active Substance: ABATACEPT
     Route: 064
  138. ORENCIA [Suspect]
     Active Substance: ABATACEPT
     Route: 064
  139. ORENCIA [Suspect]
     Active Substance: ABATACEPT
     Route: 064
  140. OTEZLA [Suspect]
     Active Substance: APREMILAST
     Indication: Foetal exposure during pregnancy
     Route: 064
  141. OTEZLA [Suspect]
     Active Substance: APREMILAST
     Route: 064
  142. OTEZLA [Suspect]
     Active Substance: APREMILAST
     Route: 064
  143. OTEZLA [Suspect]
     Active Substance: APREMILAST
     Route: 064
  144. PHTHALYLSULFATHIAZOLE [Suspect]
     Active Substance: PHTHALYLSULFATHIAZOLE
     Indication: Foetal exposure during pregnancy
     Route: 064
  145. PHTHALYLSULFATHIAZOLE [Suspect]
     Active Substance: PHTHALYLSULFATHIAZOLE
     Route: 064
  146. PHTHALYLSULFATHIAZOLE [Suspect]
     Active Substance: PHTHALYLSULFATHIAZOLE
     Route: 064
  147. PHTHALYLSULFATHIAZOLE [Suspect]
     Active Substance: PHTHALYLSULFATHIAZOLE
     Route: 064
  148. PHTHALYLSULFATHIAZOLE [Suspect]
     Active Substance: PHTHALYLSULFATHIAZOLE
     Route: 064
  149. PHTHALYLSULFATHIAZOLE [Suspect]
     Active Substance: PHTHALYLSULFATHIAZOLE
     Route: 064
  150. PHTHALYLSULFATHIAZOLE [Suspect]
     Active Substance: PHTHALYLSULFATHIAZOLE
     Route: 064
  151. PREDNISONE [Suspect]
     Active Substance: PREDNISONE
     Indication: Foetal exposure during pregnancy
     Route: 064
  152. PREDNISONE [Suspect]
     Active Substance: PREDNISONE
     Route: 064
  153. PREDNISONE [Suspect]
     Active Substance: PREDNISONE
     Route: 064
  154. PREDNISONE [Suspect]
     Active Substance: PREDNISONE
     Route: 064
  155. PREDNISONE [Suspect]
     Active Substance: PREDNISONE
     Route: 064
  156. PREDNISONE [Suspect]
     Active Substance: PREDNISONE
     Route: 064
  157. PREDNISONE [Suspect]
     Active Substance: PREDNISONE
     Route: 064
  158. PSEUDOEPHEDRINE HYDROCHLORIDE [Suspect]
     Active Substance: PSEUDOEPHEDRINE HYDROCHLORIDE
     Indication: Foetal exposure during pregnancy
     Route: 064
  159. PSEUDOEPHEDRINE HYDROCHLORIDE [Suspect]
     Active Substance: PSEUDOEPHEDRINE HYDROCHLORIDE
     Route: 064
  160. PSEUDOEPHEDRINE HYDROCHLORIDE [Suspect]
     Active Substance: PSEUDOEPHEDRINE HYDROCHLORIDE
     Route: 064
  161. CETIRIZINE HYDROCHLORIDE\PSEUDOEPHEDRINE HYDROCHLORIDE [Suspect]
     Active Substance: CETIRIZINE HYDROCHLORIDE\PSEUDOEPHEDRINE HYDROCHLORIDE
     Indication: Foetal exposure during pregnancy
     Route: 064
  162. REMICADE [Suspect]
     Active Substance: INFLIXIMAB
     Indication: Foetal exposure during pregnancy
     Route: 064
  163. REMICADE [Suspect]
     Active Substance: INFLIXIMAB
     Route: 064
  164. REMICADE [Suspect]
     Active Substance: INFLIXIMAB
     Route: 064
  165. REMICADE [Suspect]
     Active Substance: INFLIXIMAB
     Route: 064
  166. REMICADE [Suspect]
     Active Substance: INFLIXIMAB
     Route: 064
  167. REMICADE [Suspect]
     Active Substance: INFLIXIMAB
     Route: 064
  168. REMICADE [Suspect]
     Active Substance: INFLIXIMAB
     Route: 064
  169. REMICADE [Suspect]
     Active Substance: INFLIXIMAB
     Route: 064
  170. SIMPONI [Suspect]
     Active Substance: GOLIMUMAB
     Indication: Foetal exposure during pregnancy
     Route: 064
  171. SIMPONI [Suspect]
     Active Substance: GOLIMUMAB
     Route: 064
  172. SIMPONI [Suspect]
     Active Substance: GOLIMUMAB
     Route: 064
  173. SIMPONI [Suspect]
     Active Substance: GOLIMUMAB
     Route: 064
  174. SOLU-MEDROL [Suspect]
     Active Substance: METHYLPREDNISOLONE SODIUM SUCCINATE
     Indication: Foetal exposure during pregnancy
     Route: 064
  175. STELARA [Suspect]
     Active Substance: USTEKINUMAB
     Indication: Foetal exposure during pregnancy
     Route: 064
  176. STELARA [Suspect]
     Active Substance: USTEKINUMAB
     Route: 064
  177. SULFASALAZINE [Suspect]
     Active Substance: SULFASALAZINE
     Indication: Foetal exposure during pregnancy
     Route: 064
  178. SULFASALAZINE [Suspect]
     Active Substance: SULFASALAZINE
     Route: 064
  179. SULFASALAZINE [Suspect]
     Active Substance: SULFASALAZINE
     Route: 064
  180. SULFASALAZINE [Suspect]
     Active Substance: SULFASALAZINE
     Route: 064
  181. SULFASALAZINE [Suspect]
     Active Substance: SULFASALAZINE
     Route: 064
  182. SULFASALAZINE [Suspect]
     Active Substance: SULFASALAZINE
     Route: 064
  183. SULFASALAZINE [Suspect]
     Active Substance: SULFASALAZINE
     Route: 064
  184. SULFASALAZINE [Suspect]
     Active Substance: SULFASALAZINE
     Route: 064
  185. SULFASALAZINE [Suspect]
     Active Substance: SULFASALAZINE
     Route: 064
  186. SULFASALAZINE [Suspect]
     Active Substance: SULFASALAZINE
     Route: 064
  187. SULFASALAZINE [Suspect]
     Active Substance: SULFASALAZINE
     Route: 064
  188. SULFASALAZINE [Suspect]
     Active Substance: SULFASALAZINE
     Route: 064
  189. SULFASALAZINE [Suspect]
     Active Substance: SULFASALAZINE
     Route: 064
  190. SULFASALAZINE [Suspect]
     Active Substance: SULFASALAZINE
     Route: 064
  191. TOCILIZUMAB [Suspect]
     Active Substance: TOCILIZUMAB
     Indication: Foetal exposure during pregnancy
     Route: 064
  192. TOCILIZUMAB [Suspect]
     Active Substance: TOCILIZUMAB
     Route: 064
  193. TOCILIZUMAB [Suspect]
     Active Substance: TOCILIZUMAB
     Route: 064
  194. PREDNISONE [Suspect]
     Active Substance: PREDNISONE
     Indication: Foetal exposure during pregnancy
     Route: 064
  195. XELJANZ [Suspect]
     Active Substance: TOFACITINIB CITRATE
     Indication: Foetal exposure during pregnancy
     Route: 064
  196. XELJANZ [Suspect]
     Active Substance: TOFACITINIB CITRATE
     Route: 064
  197. XELJANZ [Suspect]
     Active Substance: TOFACITINIB CITRATE
     Route: 064
  198. XELJANZ [Suspect]
     Active Substance: TOFACITINIB CITRATE
     Route: 064
  199. XELJANZ [Suspect]
     Active Substance: TOFACITINIB CITRATE
     Route: 064
  200. ALENDRONATE SODIUM [Suspect]
     Active Substance: ALENDRONATE SODIUM
     Indication: Foetal exposure during pregnancy
     Route: 064
  201. ALENDRONATE SODIUM [Suspect]
     Active Substance: ALENDRONATE SODIUM
     Route: 064
  202. ALENDRONATE SODIUM [Suspect]
     Active Substance: ALENDRONATE SODIUM
     Route: 064
  203. ALENDRONATE SODIUM [Suspect]
     Active Substance: ALENDRONATE SODIUM
     Route: 064
  204. CALCIUM GLUBIONATE [Suspect]
     Active Substance: CALCIUM GLUBIONATE
     Indication: Foetal exposure during pregnancy
     Route: 064
  205. CETIRIZINE HYDROCHLORIDE [Suspect]
     Active Substance: CETIRIZINE HYDROCHLORIDE
     Indication: Foetal exposure during pregnancy
     Route: 064
  206. CETIRIZINE HYDROCHLORIDE [Suspect]
     Active Substance: CETIRIZINE HYDROCHLORIDE
     Route: 064
  207. CETIRIZINE HYDROCHLORIDE [Suspect]
     Active Substance: CETIRIZINE HYDROCHLORIDE
     Route: 064
  208. CETIRIZINE HYDROCHLORIDE [Suspect]
     Active Substance: CETIRIZINE HYDROCHLORIDE
     Route: 064
  209. CETIRIZINE HYDROCHLORIDE [Suspect]
     Active Substance: CETIRIZINE HYDROCHLORIDE
     Route: 064
  210. DESOXIMETASONE [Suspect]
     Active Substance: DESOXIMETASONE
     Indication: Foetal exposure during pregnancy
     Route: 064
  211. DESOXIMETASONE [Suspect]
     Active Substance: DESOXIMETASONE
     Route: 064
  212. DESOXIMETASONE [Suspect]
     Active Substance: DESOXIMETASONE
     Route: 064
  213. DESOXIMETASONE [Suspect]
     Active Substance: DESOXIMETASONE
     Route: 064
  214. DESOXIMETASONE [Suspect]
     Active Substance: DESOXIMETASONE
     Route: 064
  215. DESOXIMETASONE [Suspect]
     Active Substance: DESOXIMETASONE
     Route: 064
  216. DESOXIMETASONE [Suspect]
     Active Substance: DESOXIMETASONE
     Route: 064
  217. DESOXIMETASONE [Suspect]
     Active Substance: DESOXIMETASONE
     Route: 064
  218. DESOXIMETASONE [Suspect]
     Active Substance: DESOXIMETASONE
     Route: 064
  219. DESOXIMETASONE [Suspect]
     Active Substance: DESOXIMETASONE
     Route: 064
  220. DESOXIMETASONE [Suspect]
     Active Substance: DESOXIMETASONE
     Route: 064
  221. DESOXIMETASONE [Suspect]
     Active Substance: DESOXIMETASONE
     Route: 064
  222. DESOXIMETASONE [Suspect]
     Active Substance: DESOXIMETASONE
     Route: 064
  223. DESOXIMETASONE [Suspect]
     Active Substance: DESOXIMETASONE
     Route: 064
  224. DESOXIMETASONE [Suspect]
     Active Substance: DESOXIMETASONE
     Route: 064
  225. DESOXIMETASONE [Suspect]
     Active Substance: DESOXIMETASONE
     Route: 064
  226. DESOXIMETASONE [Suspect]
     Active Substance: DESOXIMETASONE
     Route: 064
  227. DESOXIMETASONE [Suspect]
     Active Substance: DESOXIMETASONE
     Route: 064
  228. DESOXIMETASONE [Suspect]
     Active Substance: DESOXIMETASONE
     Route: 064
  229. VITAMIN D3 [Suspect]
     Active Substance: CHOLECALCIFEROL
     Indication: Foetal exposure during pregnancy
     Route: 064
  230. VITAMIN D3 [Suspect]
     Active Substance: CHOLECALCIFEROL
     Route: 064
  231. VITAMIN D3 [Suspect]
     Active Substance: CHOLECALCIFEROL
     Route: 064
  232. CERTOLIZUMAB PEGOL [Suspect]
     Active Substance: CERTOLIZUMAB PEGOL
     Indication: Foetal exposure during pregnancy
     Route: 064
  233. AZATHIOPRINE [Suspect]
     Active Substance: AZATHIOPRINE
     Indication: Foetal exposure during pregnancy
     Route: 064
  234. FLUMETHASONE PIVALATE [Suspect]
     Active Substance: FLUMETHASONE PIVALATE
     Indication: Foetal exposure during pregnancy
     Route: 064
  235. HYDROCORTISONE [Suspect]
     Active Substance: HYDROCORTISONE
     Indication: Foetal exposure during pregnancy
     Route: 064
  236. METHYLPREDNISOLONE [Suspect]
     Active Substance: METHYLPREDNISOLONE
     Indication: Foetal exposure during pregnancy
     Route: 064
  237. MINOCYCLINE [Suspect]
     Active Substance: MINOCYCLINE HYDROCHLORIDE
     Indication: Foetal exposure during pregnancy
     Route: 064
  238. MINOCYCLINE [Suspect]
     Active Substance: MINOCYCLINE HYDROCHLORIDE
     Route: 064
  239. MYOCHRYSINE [Suspect]
     Active Substance: GOLD SODIUM THIOMALATE
     Indication: Foetal exposure during pregnancy
     Route: 064
  240. PERIOGARD [Suspect]
     Active Substance: CHLORHEXIDINE GLUCONATE
     Indication: Foetal exposure during pregnancy
     Route: 064
  241. PSEUDOEPHEDRINE [Suspect]
     Active Substance: PSEUDOEPHEDRINE
     Indication: Foetal exposure during pregnancy
     Route: 065
  242. SIRUKUMAB [Suspect]
     Active Substance: SIRUKUMAB
     Indication: Foetal exposure during pregnancy
     Route: 064
  243. SULFAMETHOXAZOLE AND TRIMETHOPRIM [Suspect]
     Active Substance: SULFAMETHOXAZOLE\TRIMETHOPRIM
     Indication: Foetal exposure during pregnancy
     Route: 064
  244. GOLD SODIUM THIOMALATE [Suspect]
     Active Substance: GOLD SODIUM THIOMALATE
     Indication: Foetal exposure during pregnancy
     Route: 064
  245. TRAMADOL HYDROCHLORIDE [Suspect]
     Active Substance: TRAMADOL HYDROCHLORIDE
     Indication: Foetal exposure during pregnancy
     Route: 064
  246. GOLD [Suspect]
     Active Substance: GOLD
     Indication: Foetal exposure during pregnancy
     Route: 064
  247. SULFASALAZINE [Suspect]
     Active Substance: SULFASALAZINE
     Indication: Foetal exposure during pregnancy
     Route: 064
  248. SULFASALAZINE [Suspect]
     Active Substance: SULFASALAZINE
     Route: 064
  249. CAFFEINE CITRATE [Concomitant]
     Active Substance: CAFFEINE CITRATE
     Indication: Foetal exposure during pregnancy
     Route: 064
  250. CODEINE [Concomitant]
     Active Substance: CODEINE
     Indication: Foetal exposure during pregnancy
     Route: 064
  251. DICLOFENAC POTASSIUM [Concomitant]
     Active Substance: DICLOFENAC POTASSIUM
     Indication: Foetal exposure during pregnancy
     Route: 064
  252. DICLOFENAC POTASSIUM [Concomitant]
     Active Substance: DICLOFENAC POTASSIUM
     Route: 064
  253. IBUPROFEN [Concomitant]
     Active Substance: IBUPROFEN
     Indication: Foetal exposure during pregnancy
     Route: 064
  254. LISINOPRIL [Concomitant]
     Active Substance: LISINOPRIL
     Indication: Foetal exposure during pregnancy
     Route: 064
  255. TOFACITINIB CITRATE [Concomitant]
     Active Substance: TOFACITINIB CITRATE
     Indication: Foetal exposure during pregnancy
     Route: 064
  256. CALCIUM GLUCONATE [Concomitant]
     Active Substance: CALCIUM GLUCONATE
     Indication: Foetal exposure during pregnancy
     Route: 064
  257. PANTOPRAZOLE [Concomitant]
     Active Substance: PANTOPRAZOLE
     Indication: Foetal exposure during pregnancy
     Route: 064
  258. QUETIAPINE FUMARATE [Concomitant]
     Active Substance: QUETIAPINE FUMARATE
     Indication: Foetal exposure during pregnancy
     Route: 064
  259. RAMIPRIL [Concomitant]
     Active Substance: RAMIPRIL
     Indication: Foetal exposure during pregnancy
     Route: 064
  260. NAPROXEN [Concomitant]
     Active Substance: NAPROXEN
     Indication: Foetal exposure during pregnancy
     Route: 064
  261. DESOGESTREL AND ETHINYL ESTRADIOL [Concomitant]
     Active Substance: DESOGESTREL\ETHINYL ESTRADIOL
     Indication: Foetal exposure during pregnancy
     Route: 064

REACTIONS (3)
  - Death neonatal [Fatal]
  - Congenital anomaly [Not Recovered/Not Resolved]
  - Foetal exposure during pregnancy [Not Recovered/Not Resolved]
